FAERS Safety Report 8022118-7 (Version None)
Quarter: 2012Q1

REPORT INFORMATION
  Report Type: 
  Country: None (occurrence: None)
  Receive Date: 20120104
  Receipt Date: 20111230
  Transmission Date: 20120608
  Serious: No
  Sender: FDA-Public Use
  Company Number: US-BAYER-2012-000447

PATIENT
  Age: 23 Year
  Sex: Female
  Weight: 68 kg

DRUGS (2)
  1. ALEVE-D SINUS + COLD [Suspect]
     Dosage: 1 TAB EVERY 12 HRS
     Route: 048
     Dates: start: 20111229, end: 20111230
  2. CETIRIZINE [Concomitant]

REACTIONS (5)
  - HYPERHIDROSIS [None]
  - CHILLS [None]
  - DIZZINESS [None]
  - BALANCE DISORDER [None]
  - INSOMNIA [None]
